FAERS Safety Report 12816238 (Version 1)
Quarter: 2016Q4

REPORT INFORMATION
  Report Type: Other
  Country: SE (occurrence: SE)
  Receive Date: 20161006
  Receipt Date: 20161006
  Transmission Date: 20170207
  Serious: No
  Sender: FDA-Public Use
  Company Number: SE-NOVEN PHARMACEUTICALS, INC.-SE2015000989

PATIENT
  Age: 55 Year
  Sex: Female

DRUGS (1)
  1. ESTRADIOL/NORETHISTERONE ACETATE [Suspect]
     Active Substance: ESTRADIOL\NORETHINDRONE ACETATE
     Indication: MENOPAUSAL DISORDER
     Dosage: UNK, UNKNOWN
     Route: 062
     Dates: start: 201408

REACTIONS (3)
  - Application site irritation [Unknown]
  - Application site pruritus [Unknown]
  - Application site erythema [Unknown]

NARRATIVE: CASE EVENT DATE: 201501
